APPROVED DRUG PRODUCT: RISEDRONATE SODIUM
Active Ingredient: RISEDRONATE SODIUM
Strength: 150MG
Dosage Form/Route: TABLET;ORAL
Application: A079215 | Product #001 | TE Code: AB
Applicant: TEVA PHARMACEUTICALS USA
Approved: Jun 13, 2014 | RLD: No | RS: No | Type: RX